FAERS Safety Report 11324533 (Version 1)
Quarter: 2015Q3

REPORT INFORMATION
  Report Type: Spontaneous
  Country: KP (occurrence: KP)
  Receive Date: 20150730
  Receipt Date: 20150730
  Transmission Date: 20151125
  Serious: Yes (Death, Hospitalization, Other)
  Sender: FDA-Public Use
  Company Number: KP-GLAXOSMITHKLINE-KP2015GSK109039

PATIENT
  Age: 33 Year
  Sex: Male

DRUGS (3)
  1. VALPROIC ACID. [Concomitant]
     Active Substance: VALPROIC ACID
     Indication: EPILEPSY
     Dosage: 1200 MG, QD
  2. ARIPIPRAZOLE. [Concomitant]
     Active Substance: ARIPIPRAZOLE
     Indication: MENTAL DISORDER DUE TO A GENERAL MEDICAL CONDITION
     Dosage: 2.5 MG, QD
  3. LAMOTRIGINE. [Suspect]
     Active Substance: LAMOTRIGINE
     Indication: EPILEPSY
     Dosage: 100 MG, QD

REACTIONS (14)
  - Rash [Unknown]
  - Conjunctivitis [Unknown]
  - Hepatic steatosis [Unknown]
  - Skin lesion [Recovering/Resolving]
  - Coagulopathy [Unknown]
  - Hepatic failure [Fatal]
  - Hypersensitivity [Unknown]
  - Hepatic encephalopathy [Unknown]
  - Depressed level of consciousness [Unknown]
  - Hepatic function abnormal [Unknown]
  - Pyrexia [Unknown]
  - Erythema multiforme [Unknown]
  - Oedema mucosal [Unknown]
  - Coma [Unknown]
